FAERS Safety Report 9707338 (Version 1)
Quarter: 2013Q4

REPORT INFORMATION
  Report Type: Spontaneous
  Country: US (occurrence: US)
  Receive Date: 20131125
  Receipt Date: 20131125
  Transmission Date: 20140711
  Serious: No
  Sender: FDA-Public Use
  Company Number: US-GLAXOSMITHKLINE-A1023411A

PATIENT
  Age: 81 Year
  Sex: Female

DRUGS (3)
  1. FLOVENT [Suspect]
     Dosage: 1PUFF TWICE PER DAY
     Route: 055
     Dates: start: 20130410, end: 20130510
  2. ZOCOR [Concomitant]
  3. TOPROL XL [Concomitant]

REACTIONS (7)
  - Oral candidiasis [Recovering/Resolving]
  - Pharyngeal oedema [Recovering/Resolving]
  - Dysphagia [Recovering/Resolving]
  - Dyspnoea [Recovering/Resolving]
  - Fatigue [Recovering/Resolving]
  - Foreign body [Recovering/Resolving]
  - Nausea [Recovering/Resolving]
